FAERS Safety Report 6252634-X (Version None)
Quarter: 2009Q2

REPORT INFORMATION
  Report Type: 
  Country: None (occurrence: None)
  Receive Date: 20090629
  Receipt Date: 20090629
  Transmission Date: 20091009
  Serious: Yes (Life-Threatening)
  Sender: FDA-Public Use
  Company Number: None

PATIENT
  Sex: Female

DRUGS (1)
  1. SEPTRA [Suspect]
     Indication: SINUSITIS
     Dates: start: 20090501, end: 20090511

REACTIONS (1)
  - STEVENS-JOHNSON SYNDROME [None]
